FAERS Safety Report 25663988 (Version 1)
Quarter: 2025Q3

REPORT INFORMATION
  Report Type: Report from Study
  Country: CN (occurrence: CN)
  Receive Date: 20250811
  Receipt Date: 20250811
  Transmission Date: 20251020
  Serious: Yes (Death)
  Sender: ROCHE
  Company Number: CN-ROCHE-10000359585

PATIENT
  Age: 69 Year
  Sex: Male

DRUGS (1)
  1. POLIVY [Suspect]
     Active Substance: POLATUZUMAB VEDOTIN-PIIQ
     Indication: Diffuse large B-cell lymphoma
     Route: 042
     Dates: start: 20250619, end: 20250619

REACTIONS (1)
  - Death [Fatal]

NARRATIVE: CASE EVENT DATE: 20250701
